FAERS Safety Report 6327259-8 (Version None)
Quarter: 2009Q3

REPORT INFORMATION
  Report Type: 
  Country: None (occurrence: None)
  Receive Date: 20090825
  Receipt Date: 20090820
  Transmission Date: 20100115
  Serious: Yes (Hospitalization)
  Sender: FDA-Public Use
  Company Number: JP-TEVA-183264ISR

PATIENT
  Sex: Female
  Weight: 50 kg

DRUGS (5)
  1. FLUOROURACIL [Suspect]
     Indication: COLORECTAL CANCER
     Route: 040
     Dates: start: 20080611
  2. FLUOROURACIL [Suspect]
     Route: 041
     Dates: start: 20080611
  3. FOLINIC ACID [Suspect]
     Indication: COLORECTAL CANCER
     Dates: start: 20080611
  4. SUNITINIB MALATE [Suspect]
     Indication: COLORECTAL CANCER
     Route: 048
     Dates: start: 20080611
  5. IRINOTECAN HCL [Suspect]
     Indication: COLORECTAL CANCER
     Route: 042
     Dates: start: 20080611

REACTIONS (1)
  - ILEUS [None]
